FAERS Safety Report 24241821 (Version 1)
Quarter: 2024Q3

REPORT INFORMATION
  Report Type: Spontaneous
  Country: FR (occurrence: FR)
  Receive Date: 20240823
  Receipt Date: 20240823
  Transmission Date: 20241017
  Serious: Yes (Other)
  Sender: TEVA
  Company Number: None

PATIENT
  Age: 70 Year
  Sex: Male
  Weight: 89 kg

DRUGS (1)
  1. ABIRATERONE [Suspect]
     Active Substance: ABIRATERONE
     Indication: Prostate cancer
     Dosage: 1 TAB/DAY, ABIRATERONE ACETATE
     Route: 048
     Dates: start: 20230401, end: 20240229

REACTIONS (5)
  - Ingrowing nail [Recovering/Resolving]
  - Nail bed infection [Recovering/Resolving]
  - Pyogenic granuloma [Recovering/Resolving]
  - Nail growth abnormal [Recovering/Resolving]
  - Oedema peripheral [Recovering/Resolving]

NARRATIVE: CASE EVENT DATE: 20230901
